FAERS Safety Report 10083424 (Version 1)
Quarter: 2014Q2

REPORT INFORMATION
  Report Type: Spontaneous
  Country: US (occurrence: None)
  Receive Date: 20140416
  Receipt Date: 20140416
  Transmission Date: 20141212
  Serious: No
  Sender: FDA-Public Use
  Company Number: None

PATIENT
  Age: 71 Year
  Sex: Female
  Weight: 38 kg

DRUGS (11)
  1. PIPERACILLIN - TAZOBACTAM [Suspect]
     Indication: PNEUMONIA
     Dosage: Q8
     Route: 042
     Dates: start: 20140317, end: 20140318
  2. MORPHINE [Concomitant]
  3. PLYDRALAG [Concomitant]
  4. PROPROFOL [Concomitant]
  5. RANITIDINE [Concomitant]
  6. LEUOPHED [Concomitant]
  7. INSULIN [Concomitant]
  8. NAGLYUPHYNS [Concomitant]
  9. FENTANYL [Concomitant]
  10. LORENIX [Concomitant]
  11. LASIX [Concomitant]

REACTIONS (3)
  - Blister [None]
  - Erythema [None]
  - Rash [None]
